FAERS Safety Report 5711752-2 (Version None)
Quarter: 2008Q2

REPORT INFORMATION
  Report Type: 
  Country: None (occurrence: None)
  Receive Date: 20080421
  Receipt Date: 20080410
  Transmission Date: 20081010
  Serious: Yes (Hospitalization, Other)
  Sender: FDA-Public Use
  Company Number: PHBS2008US03971

PATIENT
  Age: 45 Year
  Sex: Male

DRUGS (3)
  1. LIORESAL [Suspect]
     Indication: MUSCLE SPASTICITY
     Dosage: 250 UG/DAY
     Route: 037
  2. BACLOFEN [Concomitant]
     Route: 048
  3. TEGRETOL [Suspect]

REACTIONS (10)
  - ABSCESS DRAINAGE [None]
  - CONDITION AGGRAVATED [None]
  - DEVICE BREAKAGE [None]
  - DRUG WITHDRAWAL CONVULSIONS [None]
  - IMPLANT SITE ABSCESS [None]
  - MENINGITIS [None]
  - MUSCLE SPASTICITY [None]
  - RESPIRATORY TRACT INFECTION [None]
  - SEROMA [None]
  - TREATMENT NONCOMPLIANCE [None]
